FAERS Safety Report 25865763 (Version 1)
Quarter: 2025Q3

REPORT INFORMATION
  Report Type: Spontaneous
  Country: US (occurrence: US)
  Receive Date: 20250930
  Receipt Date: 20250930
  Transmission Date: 20251020
  Serious: Yes (Hospitalization, Other)
  Sender: NOVO NORDISK
  Company Number: US-NOVOPROD-1529941

PATIENT
  Age: 65 Year
  Sex: Male
  Weight: 196 kg

DRUGS (1)
  1. OZEMPIC [Suspect]
     Active Substance: SEMAGLUTIDE
     Indication: Type 2 diabetes mellitus
     Dosage: 1 MG, QW
     Route: 058
     Dates: start: 202309

REACTIONS (11)
  - Accident at work [Not Recovered/Not Resolved]
  - Spinal fracture [Not Recovered/Not Resolved]
  - Ear injury [Not Recovered/Not Resolved]
  - Spinal operation [Unknown]
  - Blood iron decreased [Recovered/Resolved]
  - Splenomegaly [Not Recovered/Not Resolved]
  - Platelet count decreased [Unknown]
  - Diarrhoea [Not Recovered/Not Resolved]
  - Vomiting [Recovered/Resolved]
  - Abdominal pain upper [Unknown]
  - Fatigue [Unknown]

NARRATIVE: CASE EVENT DATE: 20230901
